FAERS Safety Report 13663695 (Version 1)
Quarter: 2017Q2

REPORT INFORMATION
  Report Type: Spontaneous
  Country: US (occurrence: US)
  Receive Date: 20170616
  Receipt Date: 20170616
  Transmission Date: 20170830
  Serious: Yes (Hospitalization)
  Sender: FDA-Public Use
  Company Number: None

PATIENT
  Age: 75 Year
  Sex: Male

DRUGS (1)
  1. ENBREL [Suspect]
     Active Substance: ETANERCEPT
     Indication: RHEUMATOID ARTHRITIS
     Route: 058
     Dates: start: 20160419, end: 20170412

REACTIONS (4)
  - Atrial fibrillation [None]
  - Lung disorder [None]
  - Pneumonia [None]
  - Therapy cessation [None]

NARRATIVE: CASE EVENT DATE: 20170412
